FAERS Safety Report 4935086-9 (Version None)
Quarter: 2006Q1

REPORT INFORMATION
  Report Type: 
  Country: None (occurrence: None)
  Receive Date: 20060302
  Receipt Date: 20060210
  Transmission Date: 20060701
  Serious: Yes (Other)
  Sender: FDA-Public Use
  Company Number: USA0510112236

PATIENT
  Age: 48 Year
  Sex: Female
  Weight: 86.4 kg

DRUGS (10)
  1. HUMULIN (HUMAN INSULIN (RDNA ORIGIN) 30% REGULAR, 70%  NPH ) [Suspect]
     Indication: DIABETES MELLITUS
  2. HUMULIN (HUMAN INSULIN (RDNA ORIGIN) [Suspect]
     Indication: DIABETES MELLITUS
  3. HUMULIN R [Suspect]
     Indication: DIABETES MELLITUS
     Dates: start: 20040101
  4. HUMULIN N [Suspect]
     Indication: DIABETES MELLITUS
  5. HUMALOG [Suspect]
     Indication: DIABETES MELLITUS
  6. NOVOLOG [Concomitant]
  7. DIOVAN [Concomitant]
  8. HYDROCHLOROTHIAZIDE [Concomitant]
  9. ASA (ASPIRIN (ACETYLSALICYLIC ACID)) [Concomitant]
  10. ZOCOR [Concomitant]

REACTIONS (7)
  - CARDIAC STRESS TEST ABNORMAL [None]
  - CARDIAC VALVE DISEASE [None]
  - FEELING HOT [None]
  - GENITAL INFECTION BACTERIAL [None]
  - HAEMORRHAGE [None]
  - MITRAL VALVE PROLAPSE [None]
  - WEIGHT INCREASED [None]
